FAERS Safety Report 15383776 (Version 1)
Quarter: 2018Q3

REPORT INFORMATION
  Report Type: Report from Study
  Country: None (occurrence: US)
  Receive Date: 20180913
  Receipt Date: 20180913
  Transmission Date: 20181010
  Serious: Yes (Other)
  Sender: FDA-Public Use
  Company Number: US-ABBVIE-18S-163-2481542-00

PATIENT
  Age: 45 Year
  Sex: Female

DRUGS (1)
  1. LUPRON [Suspect]
     Active Substance: LEUPROLIDE ACETATE
     Indication: PRODUCT USED FOR UNKNOWN INDICATION
     Route: 065

REACTIONS (6)
  - Asthenia [Unknown]
  - Dizziness [Unknown]
  - Anaemia [Unknown]
  - Dyspnoea [Unknown]
  - Menorrhagia [Unknown]
  - Headache [Unknown]

NARRATIVE: CASE EVENT DATE: 20180707
